FAERS Safety Report 15256875 (Version 1)
Quarter: 2018Q3

REPORT INFORMATION
  Report Type: Report from Study
  Country: CA (occurrence: CA)
  Receive Date: 20180808
  Receipt Date: 20180808
  Transmission Date: 20181010
  Serious: Yes (Other)
  Sender: FDA-Public Use
  Company Number: CA-ACTELION-A-NJ2018-173069

PATIENT
  Age: 30 Year
  Sex: Female
  Weight: 47.17 kg

DRUGS (11)
  1. UPTRAVI [Suspect]
     Active Substance: SELEXIPAG
     Dosage: 400 MCG, BID
     Route: 048
     Dates: end: 20180715
  2. SINGULAIR [Concomitant]
     Active Substance: MONTELUKAST SODIUM
  3. VITAMIN D [Concomitant]
     Active Substance: CHOLECALCIFEROL
     Dosage: 4000 IU, UNK
  4. OXYGEN. [Concomitant]
     Active Substance: OXYGEN
     Dosage: UNK
  5. UPTRAVI [Suspect]
     Active Substance: SELEXIPAG
     Indication: PULMONARY ARTERIAL HYPERTENSION
     Dosage: 600 MCG, BID
     Route: 048
     Dates: start: 20180507
  6. MULTIVITAMINS W/MINERALS [Concomitant]
     Active Substance: MINERALS\VITAMINS
  7. UPTRAVI [Suspect]
     Active Substance: SELEXIPAG
     Dosage: 800 MCG, BID
     Route: 048
  8. SHARK LIVER OIL [Concomitant]
     Active Substance: SHARK LIVER OIL
  9. OPSUMIT [Suspect]
     Active Substance: MACITENTAN
     Indication: PULMONARY ARTERIAL HYPERTENSION
     Dosage: 10 MG, QD
     Route: 048
     Dates: start: 20150504
  10. ADCIRCA [Concomitant]
     Active Substance: TADALAFIL
  11. WARFARIN [Concomitant]
     Active Substance: WARFARIN
     Dosage: 9 MG, UNK

REACTIONS (12)
  - Throat irritation [Recovering/Resolving]
  - Fatigue [Not Recovered/Not Resolved]
  - Fluid retention [Unknown]
  - Dyspnoea [Not Recovered/Not Resolved]
  - Throat tightness [Unknown]
  - Diarrhoea [Recovered/Resolved]
  - Cardiac failure [Unknown]
  - Weight increased [Unknown]
  - Nausea [Recovered/Resolved]
  - Rebound effect [Unknown]
  - Vomiting [Not Recovered/Not Resolved]
  - Condition aggravated [Unknown]

NARRATIVE: CASE EVENT DATE: 20180717
